FAERS Safety Report 16480273 (Version 2)
Quarter: 2019Q3

REPORT INFORMATION
  Report Type: Report from Study
  Country: JP (occurrence: JP)
  Receive Date: 20190626
  Receipt Date: 20190712
  Transmission Date: 20191004
  Serious: Yes (Hospitalization)
  Sender: FDA-Public Use
  Company Number: JP-ASTRAZENECA-2019SE91017

PATIENT
  Age: 75 Year
  Sex: Female
  Weight: 46 kg

DRUGS (8)
  1. DENOTAS [Concomitant]
     Active Substance: CALCIUM CARBONATE\CHOLECALCIFEROL\MAGNESIUM CARBONATE
     Indication: BONE LESION
     Route: 048
     Dates: start: 20180726, end: 20190615
  2. PANVITAN [Concomitant]
     Indication: VITAMIN SUPPLEMENTATION
     Route: 048
     Dates: start: 20180726, end: 20190615
  3. AZUNOL [Concomitant]
     Indication: STOMATITIS
     Dosage: 0.033% OINTMENT, APPLY TO LIPS SEVERAL TIMES PER DAY
     Route: 062
     Dates: start: 20180813
  4. AZUNOL GARGLE LIQUID [Concomitant]
     Indication: STOMATITIS
     Dosage: 4% GARFLE LIQUID, SEVERAL TIMES PER DAY
     Route: 048
     Dates: start: 20180803
  5. TAGRISSO [Suspect]
     Active Substance: OSIMERTINIB
     Indication: NON-SMALL CELL LUNG CANCER
     Route: 048
     Dates: start: 20190624
  6. TAGRISSO [Suspect]
     Active Substance: OSIMERTINIB
     Indication: NON-SMALL CELL LUNG CANCER
     Route: 048
     Dates: start: 20190607, end: 20190615
  7. RANMARK [Concomitant]
     Active Substance: DENOSUMAB
     Indication: BONE LESION
     Route: 058
     Dates: start: 20180726
  8. BILANOA [Concomitant]
     Active Substance: BILASTINE
     Indication: RHINITIS ALLERGIC
     Route: 048
     Dates: start: 20181012, end: 20190615

REACTIONS (1)
  - Enterocolitis [Recovered/Resolved]

NARRATIVE: CASE EVENT DATE: 20190615
